FAERS Safety Report 23027846 (Version 1)
Quarter: 2023Q4

REPORT INFORMATION
  Report Type: Spontaneous
  Country: US (occurrence: US)
  Receive Date: 20231004
  Receipt Date: 20231004
  Transmission Date: 20240110
  Serious: Yes (Hospitalization)
  Sender: FDA-Public Use
  Company Number: US-ROCHE-2686279

PATIENT
  Age: 72 Year
  Sex: Female

DRUGS (2)
  1. VALGANCICLOVIR [Suspect]
     Active Substance: VALGANCICLOVIR
     Indication: Renal transplant
     Dosage: 2 TABLETS DAILY?DAILY DOSE: 450 MILLIGRAM
  2. CELLCEPT [Suspect]
     Active Substance: MYCOPHENOLATE MOFETIL
     Indication: Renal transplant
     Dosage: 3 CAPSULES TWICE DAY
     Route: 048

REACTIONS (3)
  - COVID-19 [Unknown]
  - Upper limb fracture [Unknown]
  - Illness [Unknown]
